FAERS Safety Report 23400936 (Version 2)
Quarter: 2024Q1

REPORT INFORMATION
  Report Type: Spontaneous
  Country: GB (occurrence: GB)
  Receive Date: 20240115
  Receipt Date: 20240125
  Transmission Date: 20240410
  Serious: Yes (Other)
  Sender: FDA-Public Use
  Company Number: GB-UCBSA-2024001720

PATIENT
  Age: 43 Year
  Sex: Male

DRUGS (1)
  1. KEPPRA [Suspect]
     Active Substance: LEVETIRACETAM
     Indication: Epilepsy
     Dosage: 100 MG/ML ORAL SOLUTION 2X/DAY (BID)
     Route: 048
     Dates: start: 20231023

REACTIONS (2)
  - Partial seizures [Recovered/Resolved with Sequelae]
  - Product tampering [Unknown]

NARRATIVE: CASE EVENT DATE: 20231025
